FAERS Safety Report 22127528 (Version 1)
Quarter: 2023Q1

REPORT INFORMATION
  Report Type: Spontaneous
  Country: PT (occurrence: PT)
  Receive Date: 20230323
  Receipt Date: 20230323
  Transmission Date: 20230417
  Serious: Yes (Hospitalization, Other)
  Sender: FDA-Public Use
  Company Number: PT-BAXTER-2023BAX013690

PATIENT
  Age: 56 Year
  Sex: Female

DRUGS (13)
  1. CALCIUM CHLORIDE\ICODEXTRIN\MAGNESIUM CHLORIDE\SODIUM CHLORIDE\SODIUM [Suspect]
     Active Substance: CALCIUM CHLORIDE\ICODEXTRIN\MAGNESIUM CHLORIDE\SODIUM CHLORIDE\SODIUM LACTATE
     Dosage: 1 L
     Route: 033
     Dates: start: 20190531, end: 20230207
  2. CALCIUM CL\DEXTROSE\MAGNESIUM CL\SODIUM BICAR\SODIUM CL\SODIUM LACT [Suspect]
     Active Substance: CALCIUM CL\DEXTROSE\MAGNESIUM CL\SODIUM BICAR\SODIUM CL\SODIUM LACT
     Dosage: 3 X 1L
     Route: 033
     Dates: start: 20190531, end: 20230207
  3. LASIX [Concomitant]
     Active Substance: FUROSEMIDE
     Dosage: 2+2 TABLETS PER DAY
     Route: 065
  4. IRON [Concomitant]
     Active Substance: IRON
     Dosage: 1 TABLET PER DAY
     Route: 065
  5. Dagravit [Concomitant]
     Dosage: 1 TABLET PER DAY
     Route: 065
  6. ALFACALCIDOL [Concomitant]
     Active Substance: ALFACALCIDOL
     Dosage: 0,25 MICROGRAM, 1 TABLET 2 TIMES WEEKLY
     Route: 065
  7. PANTOPRAZOLE SODIUM [Concomitant]
     Active Substance: PANTOPRAZOLE SODIUM
     Dosage: 20 MG, 1 TABLET PERDAY
     Route: 065
  8. LOSARTAN [Concomitant]
     Active Substance: LOSARTAN
     Dosage: 50 MG 1+1 +1 TABLET PER DAY
     Route: 065
  9. Vigantol [Concomitant]
     Dosage: 4 DROPS
     Route: 065
  10. RENAGEL [Concomitant]
     Active Substance: SEVELAMER HYDROCHLORIDE
     Dosage: 800 MG ,1+1+1 TABLET PER DAY
     Route: 065
  11. ERYTHROPOIETIN [Concomitant]
     Active Substance: ERYTHROPOIETIN
     Dosage: 2000 U 2 TIMES A WEEK
     Route: 065
  12. AMLODIPINE [Concomitant]
     Active Substance: AMLODIPINE BESYLATE
     Dosage: 5 MG 1+1 TABLET PER DAY
     Route: 065
  13. FOLIC ACID [Concomitant]
     Active Substance: FOLIC ACID
     Dosage: 1 TABLET PER DAY
     Route: 065

REACTIONS (7)
  - Osteomyelitis [Recovered/Resolved]
  - Pseudomonas infection [Recovered/Resolved]
  - Peritonitis bacterial [Recovered/Resolved]
  - Peritoneal cloudy effluent [Recovered/Resolved]
  - Abdominal pain [Recovered/Resolved]
  - Vomiting [Recovered/Resolved]
  - Diarrhoea [Recovered/Resolved]

NARRATIVE: CASE EVENT DATE: 20230117
